FAERS Safety Report 9515694 (Version 1)
Quarter: 2013Q3

REPORT INFORMATION
  Report Type: Spontaneous
  Country: GB (occurrence: None)
  Receive Date: 20130909
  Receipt Date: 20130909
  Transmission Date: 20140515
  Serious: Yes (Disabling)
  Sender: FDA-Public Use
  Company Number: GER/UKI/13/0034409

PATIENT
  Age: 73 Year
  Sex: Female
  Weight: 102 kg

DRUGS (6)
  1. LETROZOLE (LETROZOLE) [Suspect]
     Indication: BREAST CANCER
     Route: 048
     Dates: start: 201202
  2. ANTIPSYCHOTICS (ANTIPSYCHOTICS) [Concomitant]
  3. SDPIRIN (ACETYLSALICYLIC ACID) [Concomitant]
  4. FUROSEMIDE (FUROSEMIDE) [Concomitant]
  5. THYROXINE (LEVOTHYROXINE SODIUM) [Concomitant]
  6. VALPROATE (VALPROATE SODIUM0 [Concomitant]

REACTIONS (1)
  - Confusional state [None]
